FAERS Safety Report 7927645-6 (Version None)
Quarter: 2011Q4

REPORT INFORMATION
  Report Type: 
  Country: None (occurrence: None)
  Receive Date: 20111118
  Receipt Date: 20111101
  Transmission Date: 20120403
  Serious: Yes (Life-Threatening, Hospitalization)
  Sender: FDA-Public Use
  Company Number: US-ROCHE-798273

PATIENT
  Age: 77 Year
  Sex: Female
  Weight: 120.4 kg

DRUGS (15)
  1. CHERATUSSIN AC [Concomitant]
     Indication: PRODUCT USED FOR UNKNOWN INDICATION
  2. AVASTIN [Suspect]
     Indication: ENDOMETRIAL CANCER
     Dosage: TOTAL DOSE ADMINISTERED: 60 MG. LAST DOSE ADMINISTERED: 07 JULY 2011
     Route: 042
  3. CARBOPLATIN [Suspect]
     Indication: ENDOMETRIAL CANCER
     Dosage: TOTAL DOSE ADMINISTERED: 415MG. LAST DOSE ADMINISTERED: 07 JULY 2011
     Route: 042
  4. HALOPERIDOL [Concomitant]
     Route: 065
  5. HYDRALAZINE HCL [Concomitant]
     Indication: PRODUCT USED FOR UNKNOWN INDICATION
     Route: 065
  6. LORAZEPAM [Concomitant]
     Indication: PRODUCT USED FOR UNKNOWN INDICATION
     Route: 065
  7. ZOFRAN [Concomitant]
     Indication: PRODUCT USED FOR UNKNOWN INDICATION
  8. IXABEPILONE [Suspect]
     Indication: ENDOMETRIAL CANCER
     Dosage: TOTAL DOSE ADMINISTERED: 1730 MG. LAST DOSE ADMINISTERED: 07 JULY 2011
     Route: 042
  9. CEPHALEXIN [Concomitant]
     Indication: PRODUCT USED FOR UNKNOWN INDICATION
  10. ADVAIR DISKUS 100/50 [Concomitant]
     Indication: PRODUCT USED FOR UNKNOWN INDICATION
  11. FUROSEMIDE [Concomitant]
     Indication: PRODUCT USED FOR UNKNOWN INDICATION
     Route: 065
  12. METOPROLOL TARTRATE [Concomitant]
     Indication: PRODUCT USED FOR UNKNOWN INDICATION
     Route: 065
  13. OXYCODONE HCL [Concomitant]
     Indication: PRODUCT USED FOR UNKNOWN INDICATION
  14. PROCHLORPERAZINE [Concomitant]
     Indication: PRODUCT USED FOR UNKNOWN INDICATION
  15. METOPROLOL TARTRATE [Concomitant]

REACTIONS (16)
  - NEUTROPHIL COUNT DECREASED [None]
  - PLATELET COUNT DECREASED [None]
  - DEPRESSED LEVEL OF CONSCIOUSNESS [None]
  - CONVULSION [None]
  - CONFUSIONAL STATE [None]
  - SINUSITIS [None]
  - CARDIAC FAILURE [None]
  - BRONCHOSPASM [None]
  - DIZZINESS [None]
  - PLEURAL EFFUSION [None]
  - HYPERTENSION [None]
  - POSTERIOR REVERSIBLE ENCEPHALOPATHY SYNDROME [None]
  - HYPOXIA [None]
  - BRONCHITIS [None]
  - ATELECTASIS [None]
  - CEREBROVASCULAR ACCIDENT [None]
